FAERS Safety Report 4592811-7 (Version None)
Quarter: 2005Q1

REPORT INFORMATION
  Report Type: 
  Country: None (occurrence: None)
  Receive Date: 20050228
  Receipt Date: 20050103
  Transmission Date: 20050727
  Serious: Yes (Hospitalization)
  Sender: FDA-Public Use
  Company Number: US-BRISTOL-MYERS SQUIBB COMPANY-12811600

PATIENT
  Age: 51 Year
  Sex: Female
  Weight: 72 kg

DRUGS (16)
  1. ERBITUX [Suspect]
     Indication: COLORECTAL CANCER METASTATIC
     Route: 042
     Dates: start: 20041222
  2. BENADRYL [Concomitant]
     Indication: PREMEDICATION
     Route: 042
     Dates: start: 20041222
  3. COMPAZINE [Concomitant]
     Indication: PREMEDICATION
     Route: 048
     Dates: start: 20041222
  4. HYDROCORTISONE [Concomitant]
     Indication: PREMEDICATION
     Route: 042
     Dates: start: 20041222
  5. ZANTAC [Concomitant]
     Indication: PREMEDICATION
     Route: 042
     Dates: start: 20041222
  6. CALCIUM SUPPLEMENT [Concomitant]
  7. CLEOCIN GEL [Concomitant]
     Route: 061
  8. KLONOPIN [Concomitant]
     Indication: RESTLESS LEGS SYNDROME
     Dosage: QHS PRN.
  9. MAGNESIUM SUPPLEMENT [Concomitant]
  10. MULTIVITAMINS + IRON [Concomitant]
     Route: 048
  11. PREMARIN [Concomitant]
     Route: 048
  12. TEMAZEPAM [Concomitant]
     Dosage: QHS.
     Route: 048
  13. THIORIDAZINE HCL [Concomitant]
     Route: 048
  14. THIORIDAZINE HCL [Concomitant]
     Route: 048
  15. VICOPROFEN [Concomitant]
     Dosage: 7.5/200 1-2 Q6H PRN.
  16. ZOLOFT [Concomitant]
     Route: 048

REACTIONS (2)
  - ASCITES [None]
  - BILIARY TRACT DISORDER [None]
